FAERS Safety Report 5115521-6 (Version None)
Quarter: 2006Q3

REPORT INFORMATION
  Report Type: 
  Country: None (occurrence: None)
  Receive Date: 20060927
  Receipt Date: 20060918
  Transmission Date: 20061208
  Serious: Yes (Other)
  Sender: FDA-Public Use
  Company Number: 2006UW18213

PATIENT
  Age: 69 Year
  Sex: Male

DRUGS (10)
  1. ZOLADEX [Suspect]
     Indication: PROSTATE CANCER
     Route: 058
     Dates: start: 20050101, end: 20050101
  2. ELIGARD [Interacting]
     Indication: PROSTATE CANCER
     Route: 058
     Dates: start: 20040201
  3. ELIGARD [Interacting]
     Route: 058
     Dates: start: 20050101, end: 20060623
  4. CYCLOSPORINE [Interacting]
     Indication: IMMUNOSUPPRESSANT DRUG THERAPY
     Route: 048
  5. CELLCEPT [Interacting]
     Indication: PROSTATE CANCER
     Route: 048
  6. AZATHIOPRINE [Interacting]
     Indication: IMMUNOSUPPRESSANT DRUG THERAPY
     Route: 048
  7. FUROSEMIDE [Concomitant]
     Route: 048
  8. LORAZEPAM [Concomitant]
     Route: 048
  9. OMEPRAZOLE [Concomitant]
     Route: 048
  10. MULTIVITAMIN [Concomitant]
     Route: 048

REACTIONS (4)
  - ARRHYTHMIA [None]
  - CHEST PAIN [None]
  - DRUG INTERACTION [None]
  - VENTRICULAR EXTRASYSTOLES [None]
